FAERS Safety Report 7360472-X (Version None)
Quarter: 2011Q1

REPORT INFORMATION
  Report Type: 
  Country: None (occurrence: None)
  Receive Date: 20110318
  Receipt Date: 20110217
  Transmission Date: 20110831
  Serious: Yes (Other)
  Sender: FDA-Public Use
  Company Number: US-BAYER-201026791NA

PATIENT
  Sex: Female
  Weight: 65.76 kg

DRUGS (7)
  1. INDERAL [Concomitant]
     Dosage: 120 MG, QD
     Route: 048
  2. YAZ [Suspect]
     Indication: VAGINAL HAEMORRHAGE
  3. YASMIN [Suspect]
     Indication: ABDOMINAL PAIN
     Dosage: UNK
     Route: 048
     Dates: start: 20070107
  4. SYMMETREL [Concomitant]
     Dosage: 100 MG, QD
     Route: 048
  5. BETASERON [Concomitant]
     Dosage: 0.3 MG, QD
     Route: 058
  6. YAZ [Suspect]
     Indication: ABDOMINAL PAIN
     Route: 048
     Dates: start: 20061201, end: 20090501
  7. YASMIN [Suspect]
     Indication: VAGINAL HAEMORRHAGE

REACTIONS (4)
  - CHOLECYSTITIS CHRONIC [None]
  - GALLBLADDER DISORDER [None]
  - GALLBLADDER CHOLESTEROLOSIS [None]
  - PAIN [None]
